FAERS Safety Report 6851051-9 (Version None)
Quarter: 2010Q3

REPORT INFORMATION
  Report Type: 
  Country: None (occurrence: None)
  Receive Date: 20100716
  Receipt Date: 20071031
  Transmission Date: 20110219
  Serious: No
  Sender: FDA-Public Use
  Company Number: US-PFIZER INC-2007092162

PATIENT
  Sex: Female
  Weight: 65.9 kg

DRUGS (8)
  1. CHANTIX [Suspect]
     Indication: SMOKING CESSATION THERAPY
     Dates: start: 20070101
  2. ELAVIL [Concomitant]
  3. OXYCONTIN [Concomitant]
  4. NAPROXEN [Concomitant]
  5. FLEXERIL [Concomitant]
  6. COLACE [Concomitant]
  7. CLONIDINE [Concomitant]
  8. PAXIL [Concomitant]

REACTIONS (3)
  - ABNORMAL DREAMS [None]
  - INSOMNIA [None]
  - NAUSEA [None]
